FAERS Safety Report 4378692-5 (Version None)
Quarter: 2004Q2

REPORT INFORMATION
  Report Type: 
  Country: None (occurrence: None)
  Receive Date: 20040616
  Receipt Date: 20040609
  Transmission Date: 20050107
  Serious: Yes (Hospitalization)
  Sender: FDA-Public Use
  Company Number: AU-ROCHE-370536

PATIENT
  Age: 41 Year
  Sex: Female

DRUGS (1)
  1. DIAZEPAM [Suspect]
     Indication: DENTAL TREATMENT
     Route: 065

REACTIONS (2)
  - THROMBOPHLEBITIS [None]
  - THROMBOSIS [None]
